FAERS Safety Report 4646217-2 (Version None)
Quarter: 2005Q2

REPORT INFORMATION
  Report Type: 
  Country: None (occurrence: None)
  Receive Date: 20050422
  Receipt Date: 20050422
  Transmission Date: 20051028
  Serious: No
  Sender: FDA-Public Use
  Company Number: None

PATIENT
  Sex: Male
  Weight: 77.9 kg

DRUGS (7)
  1. ALLOPURINOL [Suspect]
     Indication: ACUTE LYMPHOCYTIC LEUKAEMIA
     Dosage: 300 MG PO QD ON DAYS 1-14
     Route: 048
     Dates: start: 20050321
  2. CYCLOPHOSPHAMIDE [Suspect]
     Dosage: SEE IMAGE
  3. DAUNORUBICIN [Suspect]
     Dosage: 80 MG/M2/DAYX 3 DAYS IV ON DAYS 1, 2, 3.
     Route: 042
  4. VINCRISTINE [Suspect]
     Dosage: SEE IMAGE
  5. DEXAMETHASONE [Suspect]
     Dosage: SEE IMAGE
  6. ELSPAR [Suspect]
     Dosage: SEE IMAGE
  7. NEUPOGEN [Suspect]
     Dosage: SEE IMAGE

REACTIONS (3)
  - BLOOD CULTURE POSITIVE [None]
  - CANDIDIASIS [None]
  - HYPOTENSION [None]
